FAERS Safety Report 6111809-0 (Version None)
Quarter: 2009Q1

REPORT INFORMATION
  Report Type: 
  Country: None (occurrence: None)
  Receive Date: 20090311
  Receipt Date: 20090302
  Transmission Date: 20090719
  Serious: Yes (Death, Hospitalization)
  Sender: FDA-Public Use
  Company Number: GB-ROCHE-617661

PATIENT
  Sex: Female
  Weight: 68 kg

DRUGS (2)
  1. CAPECITABINE [Suspect]
     Dosage: DOSAGE FORM AND STRENGTH AS PER PROTOCOL.  DATA OF MOST RECENT ADMINISTRATION 02 SEP 2008
     Route: 048
     Dates: start: 20080305
  2. BEVACIZUMAB [Suspect]
     Dosage: DOSAGE FORM AND STRENGTH AS PER PROTOCOL. NO OF CYCLES RECEIVED: 15. DATE OF RECENT DOSE 10 FEB 2009
     Route: 042
     Dates: start: 20080305

REACTIONS (1)
  - VOLVULUS [None]
